FAERS Safety Report 23306174 (Version 1)
Quarter: 2023Q4

REPORT INFORMATION
  Report Type: Spontaneous
  Country: SA (occurrence: SA)
  Receive Date: 20231218
  Receipt Date: 20231218
  Transmission Date: 20240110
  Serious: Yes (Death)
  Sender: FDA-Public Use
  Company Number: SA-EPICPHARMA-SA-2023EPCLIT01829

PATIENT
  Age: 42 Year

DRUGS (1)
  1. AMPHETAMINE SULFATE [Suspect]
     Active Substance: AMPHETAMINE SULFATE
     Indication: Product used for unknown indication
     Route: 048

REACTIONS (2)
  - Road traffic accident [Fatal]
  - Injury [Fatal]
